FAERS Safety Report 6812224-4 (Version None)
Quarter: 2010Q3

REPORT INFORMATION
  Report Type: 
  Country: None (occurrence: None)
  Receive Date: 20100701
  Receipt Date: 20100211
  Transmission Date: 20110219
  Serious: Yes (Hospitalization)
  Sender: FDA-Public Use
  Company Number: FR-WYE-H15901610

PATIENT
  Age: 74 Year
  Sex: Male

DRUGS (8)
  1. CORDARONE [Suspect]
     Indication: ATRIAL FIBRILLATION
     Route: 048
     Dates: start: 20090901, end: 20090101
  2. CORDARONE [Suspect]
     Dosage: UNSPECIFIED
     Route: 048
     Dates: start: 20090101
  3. CALDINE [Concomitant]
     Dosage: UNSPECIFIED
     Dates: end: 20100127
  4. LACIDIPINE [Concomitant]
  5. SINTROM [Suspect]
     Indication: PROPHYLAXIS
  6. PREVISCAN [Concomitant]
  7. COAPROVEL [Concomitant]
     Dosage: 150/12.5
     Dates: start: 20100128
  8. GLIBENESE [Concomitant]
     Indication: DIABETES MELLITUS

REACTIONS (7)
  - BLOOD CREATININE INCREASED [None]
  - BLOOD PRESSURE INCREASED [None]
  - EYELID OEDEMA [None]
  - FACE OEDEMA [None]
  - OEDEMA [None]
  - OEDEMA PERIPHERAL [None]
  - PENILE OEDEMA [None]
